FAERS Safety Report 4676723-6 (Version None)
Quarter: 2005Q2

REPORT INFORMATION
  Report Type: 
  Country: None (occurrence: None)
  Receive Date: 20050527
  Receipt Date: 20020325
  Transmission Date: 20051028
  Serious: Yes (Hospitalization)
  Sender: FDA-Public Use
  Company Number: JP-ABBOTT-02P-087-0190399-00

PATIENT
  Sex: Male

DRUGS (17)
  1. KALETRA [Suspect]
     Indication: HIV INFECTION
     Route: 048
     Dates: start: 20010913, end: 20020122
  2. STAVUDINE [Suspect]
     Indication: HIV INFECTION
     Route: 048
     Dates: start: 20010913, end: 20020122
  3. STAVUDINE [Suspect]
     Route: 048
     Dates: start: 20020318, end: 20020719
  4. STAVUDINE [Suspect]
     Route: 048
     Dates: start: 20020725, end: 20021124
  5. DIDANOSINE [Suspect]
     Indication: HIV INFECTION
     Route: 048
     Dates: start: 20010913, end: 20020122
  6. DIDANOSINE [Suspect]
     Route: 048
     Dates: start: 20020318, end: 20020719
  7. DIDANOSINE [Suspect]
     Route: 048
     Dates: start: 20020725, end: 20021124
  8. ZIDOVUDINE [Suspect]
     Indication: HIV INFECTION
     Route: 048
     Dates: start: 20010401, end: 20010611
  9. ZIDOVUDINE [Suspect]
     Route: 048
     Dates: start: 20010711, end: 20010912
  10. LAMIVUDINE [Suspect]
     Indication: HIV INFECTION
     Route: 048
     Dates: start: 20010401, end: 20010611
  11. LAMIVUDINE [Suspect]
     Route: 048
     Dates: start: 20010711, end: 20010912
  12. ABACAVIR [Suspect]
     Indication: HIV INFECTION
     Route: 048
     Dates: start: 20010325, end: 20010401
  13. AMPRENAVIR [Concomitant]
     Indication: HIV INFECTION
     Route: 048
     Dates: start: 20020318, end: 20020409
  14. AMPRENAVIR [Concomitant]
     Route: 048
     Dates: start: 20020410, end: 20020507
  15. AMPRENAVIR [Concomitant]
     Route: 048
     Dates: start: 20020508, end: 20020719
  16. AMPRENAVIR [Concomitant]
     Route: 048
     Dates: start: 20020725, end: 20021124
  17. EFAVIRENZ [Concomitant]
     Route: 048
     Dates: start: 20010326, end: 20010611

REACTIONS (9)
  - ABDOMINAL DISTENSION [None]
  - CONDITION AGGRAVATED [None]
  - FATIGUE [None]
  - HAEMOGLOBIN DECREASED [None]
  - HAEMORRHAGIC DIATHESIS [None]
  - MALAISE [None]
  - PALPITATIONS [None]
  - TACHYCARDIA [None]
  - WHITE BLOOD CELL COUNT DECREASED [None]
